FAERS Safety Report 19009926 (Version 1)
Quarter: 2021Q1

REPORT INFORMATION
  Report Type: Spontaneous
  Country: CN (occurrence: CN)
  Receive Date: 20210316
  Receipt Date: 20210316
  Transmission Date: 20210420
  Serious: Yes (Other)
  Sender: FDA-Public Use
  Company Number: CN-LEO PHARMA-335120

PATIENT
  Sex: Female

DRUGS (4)
  1. SELENIOUS YEAST TABLETS [Concomitant]
     Indication: VITILIGO
     Dosage: ORAL, 2 TABLETS TWICE A DAY
     Route: 048
     Dates: start: 202010
  2. PROTOPIC [Suspect]
     Active Substance: TACROLIMUS
     Indication: VULVAL LEUKOPLAKIA
     Route: 061
     Dates: start: 20210226
  3. PROTOPIC [Suspect]
     Active Substance: TACROLIMUS
     Indication: VULVAL LEUKOPLAKIA
     Route: 061
     Dates: start: 20210226
  4. PROTOPIC [Suspect]
     Active Substance: TACROLIMUS
     Indication: VULVAL LEUKOPLAKIA
     Route: 061
     Dates: start: 20210226

REACTIONS (4)
  - Application site pruritus [Not Recovered/Not Resolved]
  - Haemorrhage [Not Recovered/Not Resolved]
  - Product use in unapproved indication [Unknown]
  - Application site pain [Not Recovered/Not Resolved]

NARRATIVE: CASE EVENT DATE: 20210226
